FAERS Safety Report 8245053-8 (Version None)
Quarter: 2012Q1

REPORT INFORMATION
  Report Type: 
  Country: None (occurrence: None)
  Receive Date: 20120329
  Receipt Date: 20120322
  Transmission Date: 20120608
  Serious: Yes (Hospitalization)
  Sender: FDA-Public Use
  Company Number: US-GLAXOSMITHKLINE-A0898261A

PATIENT
  Sex: Male
  Weight: 108.2 kg

DRUGS (7)
  1. LISINOPRIL [Concomitant]
  2. CELEBREX [Concomitant]
     Dates: end: 20080301
  3. PEPCID [Concomitant]
  4. SIMVASTATIN [Concomitant]
  5. AVANDAMET [Suspect]
     Indication: DIABETES MELLITUS
     Dosage: 1TAB TWICE PER DAY
     Route: 048
     Dates: end: 20101227
  6. AVANDIA [Suspect]
     Indication: DIABETES MELLITUS
     Route: 048
     Dates: end: 20070901
  7. LYRICA [Concomitant]

REACTIONS (2)
  - CEREBROVASCULAR ACCIDENT [None]
  - TRANSIENT ISCHAEMIC ATTACK [None]
